FAERS Safety Report 22531158 (Version 1)
Quarter: 2023Q2

REPORT INFORMATION
  Report Type: Spontaneous
  Country: PR (occurrence: PR)
  Receive Date: 20230607
  Receipt Date: 20230607
  Transmission Date: 20230722
  Serious: No
  Sender: FDA-Public Use
  Company Number: PR-ABBVIE-5279267

PATIENT

DRUGS (1)
  1. CARIPRAZINE HYDROCHLORIDE [Suspect]
     Active Substance: CARIPRAZINE HYDROCHLORIDE
     Indication: Schizoaffective disorder
     Route: 048

REACTIONS (2)
  - Therapeutic response unexpected [Unknown]
  - Off label use [Unknown]
